FAERS Safety Report 19128326 (Version 1)
Quarter: 2021Q2

REPORT INFORMATION
  Report Type: Report from Study
  Country: US (occurrence: US)
  Receive Date: 20210413
  Receipt Date: 20210413
  Transmission Date: 20210717
  Serious: Yes (Death, Hospitalization)
  Sender: FDA-Public Use
  Company Number: US-MYLANLABS-2021M1021675

PATIENT
  Sex: Female
  Weight: 74 kg

DRUGS (6)
  1. LEUCOVORIN CALCIUM FOR INJECTION [Suspect]
     Active Substance: LEUCOVORIN CALCIUM
     Indication: OESOPHAGEAL CANCER METASTATIC
     Dosage: 400 MILLIGRAM/SQ. METER, CYCLE
     Route: 042
     Dates: start: 20200320, end: 20200821
  2. OMEPRAZOL                          /00661201/ [Concomitant]
     Active Substance: OMEPRAZOLE
     Dosage: UNK
     Dates: start: 20200207
  3. TRAMADOL. [Concomitant]
     Active Substance: TRAMADOL
     Dosage: UNK
     Dates: start: 20200130
  4. MARINOL [Concomitant]
     Active Substance: DRONABINOL
     Dosage: UNK
     Dates: start: 20200319
  5. FLUOROURACIL. [Suspect]
     Active Substance: FLUOROURACIL
     Indication: OESOPHAGEAL CANCER METASTATIC
     Dosage: 2400 MILLIGRAM/SQ. METER, CYCLE
     Route: 042
     Dates: start: 20200320, end: 20200823
  6. OXALIPLATIN. [Suspect]
     Active Substance: OXALIPLATIN
     Indication: OESOPHAGEAL CANCER METASTATIC
     Dosage: 85 MILLIGRAM/SQ. METER, CYCLE
     Route: 042
     Dates: start: 20200320, end: 20200821

REACTIONS (2)
  - Malignant neoplasm progression [Fatal]
  - Adult failure to thrive [Recovered/Resolved]
